FAERS Safety Report 9040783 (Version 1)
Quarter: 2013Q1

REPORT INFORMATION
  Report Type: Report from Study
  Country: US (occurrence: US)
  Receive Date: 20130129
  Receipt Date: 20130129
  Transmission Date: 20140127
  Serious: No
  Sender: FDA-Public Use
  Company Number: US-ABBOTT-12P-163-0893621-00

PATIENT
  Age: 64 Year
  Sex: Male

DRUGS (5)
  1. HUMIRA 40 MG/0.8 ML PEN [Suspect]
     Indication: CROHN^S DISEASE
     Dates: start: 20111129
  2. MERCAPTOPURINE [Concomitant]
     Indication: CROHN^S DISEASE
     Route: 048
  3. ENTOCORT [Concomitant]
     Indication: CROHN^S DISEASE
     Dosage: IN THE MORNING
  4. PENTASA [Concomitant]
     Indication: CROHN^S DISEASE
     Route: 048
  5. B-12 INJECTION [Concomitant]
     Indication: PRODUCT USED FOR UNKNOWN INDICATION

REACTIONS (1)
  - Injection site bruising [Recovering/Resolving]
